FAERS Safety Report 18343828 (Version 1)
Quarter: 2020Q4

REPORT INFORMATION
  Report Type: Report from Study
  Country: AU (occurrence: AU)
  Receive Date: 20201005
  Receipt Date: 20201005
  Transmission Date: 20210114
  Serious: Yes (Other)
  Sender: FDA-Public Use
  Company Number: AU-NALPROPION PHARMACEUTICALS INC.-2020-011268

PATIENT

DRUGS (2)
  1. CONTRAVE [Suspect]
     Active Substance: BUPROPION HYDROCHLORIDE\NALTREXONE HYDROCHLORIDE
     Indication: WEIGHT DECREASED
     Dosage: 1 TABLET IN THE MORNING
     Route: 065
     Dates: start: 20200920, end: 20200920
  2. ESTELLE                            /00541901/ [Concomitant]
     Indication: CONTRACEPTION
     Dosage: 1 TABLET DAILY

REACTIONS (6)
  - Hypoaesthesia oral [Recovered/Resolved]
  - Paranoia [Not Recovered/Not Resolved]
  - Tremor [Recovered/Resolved]
  - Visual field defect [Recovered/Resolved]
  - Tinnitus [Not Recovered/Not Resolved]
  - Hot flush [Not Recovered/Not Resolved]

NARRATIVE: CASE EVENT DATE: 20200920
